FAERS Safety Report 5027838-4 (Version None)
Quarter: 2006Q2

REPORT INFORMATION
  Report Type: 
  Country: None (occurrence: None)
  Receive Date: 20060616
  Receipt Date: 20060606
  Transmission Date: 20061013
  Serious: Yes (Hospitalization)
  Sender: FDA-Public Use
  Company Number: US-AMGEN-US182018

PATIENT
  Sex: Male

DRUGS (19)
  1. ARANESP [Suspect]
     Indication: ANAEMIA
     Route: 058
     Dates: start: 20050601, end: 20060524
  2. VITAMIN B-12 [Concomitant]
     Route: 065
  3. MULTIVITAMIN [Concomitant]
     Route: 065
  4. CALCIUM CARBONATE [Concomitant]
     Route: 065
  5. VITAMIN D [Concomitant]
     Route: 065
  6. LASIX [Concomitant]
     Route: 065
  7. POTASSIUM CHLORIDE [Concomitant]
     Route: 065
  8. ALDACTONE [Concomitant]
     Route: 065
  9. PRINIVIL [Concomitant]
     Route: 064
  10. ATENOLOL [Concomitant]
     Route: 065
  11. LIPITOR [Concomitant]
     Route: 065
  12. ZETIA [Concomitant]
     Route: 065
  13. COUMADIN [Concomitant]
     Route: 065
  14. PROSCAR [Concomitant]
     Route: 065
  15. FLOMAX [Concomitant]
     Route: 065
  16. TYLENOL (CAPLET) [Concomitant]
     Route: 065
  17. FERROUS SULFATE TAB [Concomitant]
     Route: 065
  18. COLACE [Concomitant]
     Route: 065
  19. LEXAPRO [Concomitant]
     Route: 065

REACTIONS (3)
  - ANAEMIA [None]
  - OCCULT BLOOD POSITIVE [None]
  - THERAPEUTIC RESPONSE DECREASED [None]
